FAERS Safety Report 5623110-X (Version None)
Quarter: 2008Q1

REPORT INFORMATION
  Report Type: 
  Country: None (occurrence: None)
  Receive Date: 20080212
  Receipt Date: 20080206
  Transmission Date: 20080703
  Serious: Yes (Death)
  Sender: FDA-Public Use
  Company Number: A0697757A

PATIENT
  Age: 61 Year
  Sex: Female
  Weight: 75.9 kg

DRUGS (2)
  1. ALKERAN [Suspect]
     Indication: MULTIPLE MYELOMA
     Route: 065
     Dates: start: 20061001
  2. REVLIMID [Suspect]
     Indication: MULTIPLE MYELOMA
     Dosage: 25MG AT NIGHT
     Route: 048
     Dates: start: 20060403, end: 20060601

REACTIONS (4)
  - COMPLICATIONS OF TRANSPLANT SURGERY [None]
  - DISEASE PROGRESSION [None]
  - INTERSTITIAL LUNG DISEASE [None]
  - RESPIRATORY FAILURE [None]
